FAERS Safety Report 21308858 (Version 1)
Quarter: 2022Q3

REPORT INFORMATION
  Report Type: Spontaneous
  Country: US (occurrence: US)
  Receive Date: 20220908
  Receipt Date: 20220908
  Transmission Date: 20221026
  Serious: No
  Sender: FDA-Public Use
  Company Number: US-MYLANLABS-2022M1088651

PATIENT
  Sex: Female
  Weight: 68.04 kg

DRUGS (1)
  1. WIXELA INHUB [Suspect]
     Active Substance: FLUTICASONE PROPIONATE\SALMETEROL XINAFOATE
     Indication: Asthma
     Dosage: 500/50 MICROGRAM, BID (1 PUFF TWICE A DAY)
     Route: 055

REACTIONS (2)
  - Product dose omission issue [Unknown]
  - Device mechanical issue [Unknown]
